FAERS Safety Report 14871515 (Version 1)
Quarter: 2018Q2

REPORT INFORMATION
  Report Type: Spontaneous
  Country: US (occurrence: US)
  Receive Date: 20180509
  Receipt Date: 20180509
  Transmission Date: 20180711
  Serious: Yes (Hospitalization)
  Sender: FDA-Public Use
  Company Number: US-ELI_LILLY_AND_COMPANY-US201804014964

PATIENT
  Sex: Female

DRUGS (2)
  1. HUMATROPE [Suspect]
     Active Substance: SOMATROPIN
     Indication: GROWTH HORMONE DEFICIENCY
     Dosage: 0.6 MG, UNKNOWN
     Route: 058
     Dates: start: 1998
  2. DOCUSATE [Concomitant]
     Active Substance: DOCUSATE
     Dosage: UNK, UNKNOWN
     Route: 065

REACTIONS (4)
  - Abdominal abscess [Recovered/Resolved]
  - Intestinal obstruction [Recovered/Resolved]
  - Intestinal ischaemia [Recovered/Resolved]
  - Exostosis [Not Recovered/Not Resolved]

NARRATIVE: CASE EVENT DATE: 2013
